FAERS Safety Report 11064248 (Version 2)
Quarter: 2015Q2

REPORT INFORMATION
  Report Type: Spontaneous
  Country: ZA (occurrence: ZA)
  Receive Date: 20150424
  Receipt Date: 20150507
  Transmission Date: 20150821
  Serious: Yes (Other)
  Sender: FDA-Public Use
  Company Number: ZA-PFIZER INC-2015132357

PATIENT
  Age: 53 Year
  Sex: Female

DRUGS (6)
  1. SALAZOPYRIN EN [Suspect]
     Active Substance: SULFASALAZINE
     Indication: PSORIATIC ARTHROPATHY
     Dosage: 500 MG, 1X/DAY
     Dates: start: 201503, end: 201503
  2. SALAZOPYRIN EN [Suspect]
     Active Substance: SULFASALAZINE
     Dosage: 2 TABLETS (1000 MG)
     Dates: start: 201503
  3. DICLOFENAC [Concomitant]
     Active Substance: DICLOFENAC
     Dosage: UNK
     Dates: start: 20150414
  4. PARACETAMOL [Concomitant]
     Active Substance: ACETAMINOPHEN
     Dosage: 2 DF, UNK
     Dates: start: 20150414
  5. SALAZOPYRIN EN [Suspect]
     Active Substance: SULFASALAZINE
     Dosage: 1 TABLET (500MG) TWICE DAILY
     Dates: start: 201503, end: 201503
  6. SALAZOPYRIN EN [Suspect]
     Active Substance: SULFASALAZINE
     Dosage: HALF TABLET (250 MG) IN THE EVENING
     Dates: start: 20150414

REACTIONS (14)
  - Malaise [Recovering/Resolving]
  - Erythema [Recovering/Resolving]
  - Feeling hot [Recovering/Resolving]
  - Chills [Recovering/Resolving]
  - Pain [Recovering/Resolving]
  - Drug hypersensitivity [Recovering/Resolving]
  - Feeling cold [Recovering/Resolving]
  - Abdominal discomfort [Recovering/Resolving]
  - Pyrexia [Recovering/Resolving]
  - Inflammatory marker increased [Recovering/Resolving]
  - Peripheral swelling [Recovering/Resolving]
  - Headache [Not Recovered/Not Resolved]
  - Feeling hot [Recovering/Resolving]
  - Fluid retention [Recovering/Resolving]

NARRATIVE: CASE EVENT DATE: 2015
